FAERS Safety Report 23069091 (Version 1)
Quarter: 2023Q4

REPORT INFORMATION
  Report Type: Spontaneous
  Country: US (occurrence: None)
  Receive Date: 20231015
  Receipt Date: 20231015
  Transmission Date: 20240110
  Serious: Yes (Other)
  Sender: FDA-Public Use
  Company Number: None

PATIENT
  Age: 61 Year
  Sex: Female
  Weight: 51.75 kg

DRUGS (2)
  1. PAXLOVID [Suspect]
     Active Substance: NIRMATRELVIR\RITONAVIR
     Indication: COVID-19
     Dosage: OTHER QUANTITY : 3 TABLET(S);?FREQUENCY : TWICE A DAY;?
     Route: 048
     Dates: start: 20231005, end: 20231008
  2. PROPOLIS [Concomitant]

REACTIONS (6)
  - Abdominal pain upper [None]
  - Renal pain [None]
  - Headache [None]
  - Vertigo [None]
  - Blood pressure increased [None]
  - Anaphylactic reaction [None]

NARRATIVE: CASE EVENT DATE: 20231008
